FAERS Safety Report 23919680 (Version 1)
Quarter: 2024Q2

REPORT INFORMATION
  Report Type: Report from Study
  Country: US (occurrence: US)
  Receive Date: 20240530
  Receipt Date: 20240530
  Transmission Date: 20240716
  Serious: Yes (Hospitalization)
  Sender: FDA-Public Use
  Company Number: US-ALNYLAM PHARMACEUTICALS, INC.-ALN-2024-002944

PATIENT

DRUGS (1)
  1. GIVLAARI [Suspect]
     Active Substance: GIVOSIRAN SODIUM
     Indication: Product used for unknown indication
     Dosage: 155 MILLIGRAM (189 MG/ML VIALS), MONTHLY (EVERY 30 DAYS)
     Route: 058
     Dates: start: 20210920, end: 20210920

REACTIONS (1)
  - Allergy to arthropod bite [Unknown]
